FAERS Safety Report 24565015 (Version 1)
Quarter: 2024Q4

REPORT INFORMATION
  Report Type: Spontaneous
  Country: FR (occurrence: FR)
  Receive Date: 20241030
  Receipt Date: 20241030
  Transmission Date: 20250115
  Serious: Yes (Other)
  Sender: PFIZER
  Company Number: FR-PFIZER INC-PV202400138842

PATIENT
  Age: 4 Year
  Sex: Male

DRUGS (2)
  1. NGENLA [Suspect]
     Active Substance: SOMATROGON-GHLA
     Dosage: 24 MG
     Route: 058
  2. RISPERIDONE [Concomitant]
     Active Substance: RISPERIDONE
     Indication: Psychomotor hyperactivity

REACTIONS (2)
  - Seizure [Unknown]
  - Head banging [Unknown]
